FAERS Safety Report 5536618-2 (Version None)
Quarter: 2007Q4

REPORT INFORMATION
  Report Type: 
  Country: None (occurrence: None)
  Receive Date: 20071206
  Receipt Date: 20070820
  Transmission Date: 20080405
  Serious: Yes (Hospitalization)
  Sender: FDA-Public Use
  Company Number: US-AMGEN-STX239660

PATIENT
  Sex: Female

DRUGS (3)
  1. ENBREL [Suspect]
     Indication: RHEUMATOID ARTHRITIS
     Route: 058
     Dates: start: 20040301
  2. ENBREL [Suspect]
     Indication: ANKYLOSING SPONDYLITIS
  3. ARAVA [Concomitant]
     Route: 065
     Dates: start: 20030101

REACTIONS (6)
  - COUGH [None]
  - DYSPNOEA [None]
  - INJECTION SITE PAIN [None]
  - LUNG ABSCESS [None]
  - PNEUMONIA [None]
  - STAPHYLOCOCCAL INFECTION [None]
